FAERS Safety Report 12262677 (Version 1)
Quarter: 2016Q2

REPORT INFORMATION
  Report Type: Spontaneous
  Country: US (occurrence: US)
  Receive Date: 20160413
  Receipt Date: 20160413
  Transmission Date: 20160815
  Serious: No
  Sender: FDA-Public Use
  Company Number: US-BAUSCH-BL-2015-017744

PATIENT
  Sex: Male

DRUGS (2)
  1. ARESTIN [Suspect]
     Active Substance: MINOCYCLINE HYDROCHLORIDE
     Indication: GINGIVAL RECESSION
     Dates: start: 20150311, end: 20150311
  2. ARESTIN [Suspect]
     Active Substance: MINOCYCLINE HYDROCHLORIDE
     Dates: start: 20150702, end: 20150702

REACTIONS (2)
  - Tongue pigmentation [Unknown]
  - Tongue discolouration [Recovered/Resolved]

NARRATIVE: CASE EVENT DATE: 201503
